FAERS Safety Report 6508943-X (Version None)
Quarter: 2009Q4

REPORT INFORMATION
  Report Type: 
  Country: None (occurrence: None)
  Receive Date: 20091221
  Receipt Date: 20091005
  Transmission Date: 20100525
  Serious: No
  Sender: FDA-Public Use
  Company Number: US-ASTRAZENECA-2009SE14565

PATIENT
  Sex: Female
  Weight: 53.5 kg

DRUGS (2)
  1. CRESTOR [Suspect]
     Route: 048
     Dates: start: 20090903, end: 20090913
  2. CRESTOR [Suspect]
     Route: 048
     Dates: end: 20090918

REACTIONS (11)
  - ARTHRALGIA [None]
  - BONE PAIN [None]
  - CONSTIPATION [None]
  - DIZZINESS [None]
  - EAR DISCOMFORT [None]
  - FATIGUE [None]
  - HEADACHE [None]
  - MYALGIA [None]
  - NAUSEA [None]
  - OCULAR DISCOMFORT [None]
  - WEIGHT DECREASED [None]
